FAERS Safety Report 4427577-4 (Version None)
Quarter: 2004Q3

REPORT INFORMATION
  Report Type: 
  Country: None (occurrence: None)
  Receive Date: 20040817
  Receipt Date: 20030407
  Transmission Date: 20050211
  Serious: Yes (Other)
  Sender: FDA-Public Use
  Company Number: US-MERCK-0304USA00826

PATIENT
  Age: 72 Year
  Sex: Female
  Weight: 81 kg

DRUGS (25)
  1. VICODIN [Concomitant]
     Route: 065
  2. BETA CAROTENE [Concomitant]
     Route: 065
  3. ZYRTEC [Concomitant]
     Route: 065
  4. FLONASE [Concomitant]
     Route: 065
  5. NEURONTIN [Concomitant]
     Route: 065
  6. GARLIC EXTRACT [Concomitant]
     Route: 065
  7. GINKGO BILOBA EXTRACT [Concomitant]
     Route: 065
  8. GLYBURIDE [Concomitant]
     Indication: DIABETES MELLITUS NON-INSULIN-DEPENDENT
     Route: 065
     Dates: start: 19980101
  9. MAXZIDE [Concomitant]
     Route: 065
     Dates: start: 19980101
  10. ATROVENT [Concomitant]
     Route: 065
  11. LORAZEPAM [Concomitant]
     Route: 065
  12. OCUVITE [Concomitant]
     Route: 065
  13. NAPROSYN [Concomitant]
     Indication: ARTHRITIS
     Route: 065
     Dates: start: 19880101, end: 20010605
  14. NAPROSYN [Concomitant]
     Route: 065
     Dates: start: 20010611
  15. PYRIDOXINE [Concomitant]
     Route: 065
  16. ALTACE [Concomitant]
     Route: 065
  17. VIOXX [Suspect]
     Indication: OSTEOARTHRITIS
     Route: 048
     Dates: start: 20010911, end: 20010925
  18. VIOXX [Suspect]
     Route: 048
     Dates: start: 20010605, end: 20010611
  19. VIOXX [Suspect]
     Route: 048
     Dates: start: 20010101, end: 20010911
  20. ZOCOR [Concomitant]
     Route: 048
  21. TEMAZEPAM [Concomitant]
     Route: 065
  22. VERAPAMIL [Concomitant]
     Route: 065
  23. CALAN [Concomitant]
     Route: 065
  24. VITAMIN E [Concomitant]
     Route: 065
  25. VITAMINS (UNSPECIFIED) [Concomitant]
     Route: 065

REACTIONS (39)
  - ABASIA [None]
  - ANXIETY [None]
  - ASTHENIA [None]
  - BLOOD CHLORIDE INCREASED [None]
  - BLOOD GLUCOSE INCREASED [None]
  - BLOOD PH INCREASED [None]
  - CEREBROVASCULAR ACCIDENT [None]
  - CHRONIC FATIGUE SYNDROME [None]
  - CONFUSIONAL STATE [None]
  - CRYING [None]
  - DEPRESSION [None]
  - DISTURBANCE IN ATTENTION [None]
  - DYSPNOEA [None]
  - HAEMATOCRIT DECREASED [None]
  - HEADACHE [None]
  - HERPES ZOSTER [None]
  - HYPERTENSION [None]
  - HYPERVENTILATION [None]
  - IMMOBILE [None]
  - INJURY [None]
  - INTERNATIONAL NORMALISED RATIO DECREASED [None]
  - INTERVERTEBRAL DISC DEGENERATION [None]
  - LOSS OF LIBIDO [None]
  - NAUSEA [None]
  - OEDEMA PERIPHERAL [None]
  - PALPITATIONS [None]
  - PANIC ATTACK [None]
  - PERSONALITY DISORDER [None]
  - POLYARTHRITIS [None]
  - POST-TRAUMATIC STRESS DISORDER [None]
  - SINUS BRADYCARDIA [None]
  - SLEEP APNOEA SYNDROME [None]
  - SLEEP DISORDER [None]
  - SPINAL OSTEOARTHRITIS [None]
  - SUICIDAL IDEATION [None]
  - SYNCOPE [None]
  - TREATMENT NONCOMPLIANCE [None]
  - TREMOR [None]
  - VISION BLURRED [None]
